FAERS Safety Report 18695507 (Version 1)
Quarter: 2021Q1

REPORT INFORMATION
  Report Type: Spontaneous
  Country: AU (occurrence: AU)
  Receive Date: 20210103
  Receipt Date: 20210103
  Transmission Date: 20210419
  Serious: No
  Sender: FDA-Public Use
  Company Number: None

PATIENT
  Age: 14 Year
  Sex: Female

DRUGS (2)
  1. BREO?ELIPTA [Concomitant]
  2. SINGULAIR [Suspect]
     Active Substance: MONTELUKAST SODIUM
     Indication: ASTHMA
     Dosage: ?          QUANTITY:1 5 MG CHEWABLE;?
     Route: 048
     Dates: start: 20090606, end: 20190606

REACTIONS (21)
  - Decreased appetite [None]
  - Arthralgia [None]
  - Fear of crowded places [None]
  - Drug ineffective [None]
  - Tongue biting [None]
  - Tremor [None]
  - Disinhibition [None]
  - Anxiety [None]
  - Autophobia [None]
  - Abdominal pain [None]
  - Aggression [None]
  - Emotional disorder [None]
  - Therapy interrupted [None]
  - Irritability [None]
  - Pallor [None]
  - Psychotic disorder [None]
  - Feeling abnormal [None]
  - Intentional self-injury [None]
  - Asthenia [None]
  - Insomnia [None]
  - Thinking abnormal [None]
